FAERS Safety Report 9018462 (Version 1)
Quarter: 2013Q1

REPORT INFORMATION
  Report Type: Spontaneous
  Country: JP (occurrence: JP)
  Receive Date: 20130118
  Receipt Date: 20130118
  Transmission Date: 20140127
  Serious: Yes (Other)
  Sender: FDA-Public Use
  Company Number: JP-ASTELLAS-2013JP000231

PATIENT
  Sex: Male

DRUGS (1)
  1. VESICARE [Suspect]
     Route: 048

REACTIONS (1)
  - Gastric fistula [Unknown]
